FAERS Safety Report 15316259 (Version 2)
Quarter: 2018Q3

REPORT INFORMATION
  Report Type: Spontaneous
  Country: US (occurrence: US)
  Receive Date: 20180824
  Receipt Date: 20180917
  Transmission Date: 20181010
  Serious: Yes (Other)
  Sender: FDA-Public Use
  Company Number: US-PFIZER INC-2018338598

PATIENT
  Age: 51 Year
  Sex: Male
  Weight: 69.85 kg

DRUGS (15)
  1. TAMSULOSIN [Concomitant]
     Active Substance: TAMSULOSIN
     Dosage: UNK
  2. LYRICA [Suspect]
     Active Substance: PREGABALIN
     Indication: NEURALGIA
     Dosage: 300 MG, UNK
  3. LYRICA [Suspect]
     Active Substance: PREGABALIN
     Indication: BLADDER PAIN
     Dosage: 200 MG, 2X/DAY
     Route: 048
     Dates: start: 20140206
  4. AMITRIPTYLINE [Concomitant]
     Active Substance: AMITRIPTYLINE
     Dosage: UNK
  5. BUSPIRONE [Concomitant]
     Active Substance: BUSPIRONE HYDROCHLORIDE
     Dosage: UNK
  6. LYRICA [Suspect]
     Active Substance: PREGABALIN
     Indication: PAIN IN EXTREMITY
     Dosage: 225 MG, UNK
  7. LYRICA [Suspect]
     Active Substance: PREGABALIN
     Indication: AMYOTROPHIC LATERAL SCLEROSIS
  8. LAMICTAL [Concomitant]
     Active Substance: LAMOTRIGINE
     Dosage: UNK
  9. LYRICA [Suspect]
     Active Substance: PREGABALIN
     Indication: CHEST PAIN
  10. LYRICA [Suspect]
     Active Substance: PREGABALIN
     Indication: UPPER MOTOR NEURONE LESION
  11. BACLOFEN. [Concomitant]
     Active Substance: BACLOFEN
     Dosage: UNK
  12. GABAPENTIN. [Concomitant]
     Active Substance: GABAPENTIN
     Dosage: UNK
  13. LOSARTAN. [Concomitant]
     Active Substance: LOSARTAN
     Dosage: UNK
  14. AMBIEN [Concomitant]
     Active Substance: ZOLPIDEM TARTRATE
     Dosage: UNK
  15. CYMBALTA [Concomitant]
     Active Substance: DULOXETINE HYDROCHLORIDE
     Dosage: UNK

REACTIONS (5)
  - Dizziness [Recovered/Resolved]
  - Amyotrophic lateral sclerosis [Not Recovered/Not Resolved]
  - Feeling abnormal [Recovered/Resolved]
  - Loss of personal independence in daily activities [Unknown]
  - Drug effect incomplete [Not Recovered/Not Resolved]

NARRATIVE: CASE EVENT DATE: 2011
